FAERS Safety Report 20764510 (Version 1)
Quarter: 2022Q2

REPORT INFORMATION
  Report Type: Other
  Country: US (occurrence: US)
  Receive Date: 20220428
  Receipt Date: 20220428
  Transmission Date: 20220720
  Serious: Yes (Life-Threatening, Hospitalization, Other)
  Sender: FDA-Public Use
  Company Number: US-C B Fleet Co Inc-202204-US-001379

PATIENT
  Age: 53 Year
  Sex: Male

DRUGS (8)
  1. ASPIRIN [Suspect]
     Active Substance: ASPIRIN
     Indication: Acute myocardial infarction
     Dosage: DOSE UNKNOWN
  2. CLOPIDOGREL [Suspect]
     Active Substance: CLOPIDOGREL BISULFATE
  3. RIVAROXABAN [Suspect]
     Active Substance: RIVAROXABAN
  4. METHYLPREDNISOLONE [Concomitant]
     Active Substance: METHYLPREDNISOLONE
  5. MYCOPHENOLATE MOFETIL [Concomitant]
     Active Substance: MYCOPHENOLATE MOFETIL
  6. CYCLOPHOSPHAMIDE [Concomitant]
     Active Substance: CYCLOPHOSPHAMIDE
  7. RITUXIMAB [Concomitant]
     Active Substance: RITUXIMAB
  8. NAFCILLIN [Concomitant]
     Active Substance: NAFCILLIN SODIUM
     Route: 042

REACTIONS (2)
  - Haemoptysis [Recovered/Resolved]
  - Respiratory failure [Recovered/Resolved]
